FAERS Safety Report 9922205 (Version 1)
Quarter: 2014Q1

REPORT INFORMATION
  Report Type: Spontaneous
  Country: RS (occurrence: RS)
  Receive Date: 20140225
  Receipt Date: 20140225
  Transmission Date: 20141002
  Serious: Yes (Other)
  Sender: FDA-Public Use
  Company Number: RS-ACTAVIS-2014-02951

PATIENT
  Age: 54 Year
  Sex: Male
  Weight: 63 kg

DRUGS (5)
  1. SINOXAL [Suspect]
     Indication: FUNCTIONAL GASTROINTESTINAL DISORDER
     Dosage: UNK
     Route: 041
     Dates: start: 20140203, end: 20140203
  2. ONDASAN [Concomitant]
     Indication: FUNCTIONAL GASTROINTESTINAL DISORDER
     Dosage: UNK
     Route: 042
     Dates: start: 20140203, end: 20140203
  3. ONDASAN [Concomitant]
     Indication: PREMEDICATION
  4. DEXASON                            /00016001/ [Concomitant]
     Indication: FUNCTIONAL GASTROINTESTINAL DISORDER
     Dosage: UNK
     Route: 042
     Dates: start: 20140203, end: 20140203
  5. DEXASON                            /00016001/ [Concomitant]
     Indication: PREMEDICATION

REACTIONS (7)
  - Dyspnoea [Recovered/Resolved]
  - Chills [Recovered/Resolved]
  - Feeling cold [Recovered/Resolved]
  - Diplopia [Recovered/Resolved]
  - Muscle spasms [Recovered/Resolved]
  - Dysphagia [Recovered/Resolved]
  - Blood pressure increased [Recovered/Resolved]
